FAERS Safety Report 8776960 (Version 5)
Quarter: 2014Q1

REPORT INFORMATION
  Report Type: Report from Study
  Country: JP (occurrence: JP)
  Receive Date: 20120911
  Receipt Date: 20140106
  Transmission Date: 20141002
  Serious: Yes (Hospitalization, Other)
  Sender: FDA-Public Use
  Company Number: JP-VERTEX PHARMACEUTICAL INC.-2012-020786

PATIENT
  Age: 60 Year
  Sex: Female

DRUGS (9)
  1. VX-950 (TELAPREVIR) [Suspect]
     Indication: CHRONIC HEPATITIS C
     Dosage: 1500 MG, QD
     Route: 048
     Dates: start: 20120710, end: 20121002
  2. REBETOL [Suspect]
     Indication: CHRONIC HEPATITIS C
     Dosage: 400 MG, QD
     Route: 048
     Dates: start: 20120710, end: 20120828
  3. REBETOL [Suspect]
     Dosage: 200 MG, QD
     Route: 048
     Dates: start: 20120829, end: 20121113
  4. REBETOL [Suspect]
     Dosage: 400 MG, QD
     Route: 048
     Dates: start: 20121114, end: 20121225
  5. PEGINTRON [Suspect]
     Indication: CHRONIC HEPATITIS C
     Dosage: 50 ?G/KG, QW
     Route: 058
     Dates: start: 20120710, end: 20121219
  6. URSO [Concomitant]
     Dosage: 600 MG, QD
     Route: 048
     Dates: end: 20120718
  7. DEPAS [Concomitant]
     Dosage: 1 DF, QD
     Route: 048
     Dates: start: 20120710, end: 20120807
  8. MARZULENE-S [Concomitant]
     Dosage: 3 DF, QD
     Route: 048
     Dates: start: 20120910, end: 20120925
  9. SELBEX [Concomitant]
     Dosage: 3 DF, QD
     Route: 048
     Dates: start: 20120926, end: 20121106

REACTIONS (5)
  - Meniere^s disease [Recovered/Resolved]
  - Meniere^s disease [Recovered/Resolved]
  - White blood cell count decreased [Not Recovered/Not Resolved]
  - White blood cell count decreased [Not Recovered/Not Resolved]
  - White blood cell count decreased [Recovered/Resolved]
